FAERS Safety Report 23591040 (Version 2)
Quarter: 2024Q2

REPORT INFORMATION
  Report Type: Report from Study
  Country: CA (occurrence: CA)
  Receive Date: 20240304
  Receipt Date: 20240409
  Transmission Date: 20240716
  Serious: Yes (Other)
  Sender: FDA-Public Use
  Company Number: CA-CELLTRION INC.-2024CA003845

PATIENT

DRUGS (5)
  1. YUFLYMA [Suspect]
     Active Substance: ADALIMUMAB-AATY
     Indication: Psoriatic arthropathy
     Dosage: 40 MG EVERY 2 WEEKS
     Route: 058
     Dates: start: 20240202
  2. YUFLYMA [Suspect]
     Active Substance: ADALIMUMAB-AATY
     Dosage: 40 MG EVERY 2 WEEKS; INJECTED 2 PENS INSTEAD OF ONE
     Route: 058
  3. FOLIC ACID [Concomitant]
     Active Substance: FOLIC ACID
  4. PREDNISONE [Concomitant]
     Active Substance: PREDNISONE
     Dosage: CURRENT - RESTARTED IN JAN 2
  5. SULFASALAZINE [Concomitant]
     Active Substance: SULFASALAZINE
     Dosage: CURRENT - RESTARTED JAN 2, TRIALED FOR 3 MONTHS PREVIOUSLY

REACTIONS (6)
  - Feeling cold [Unknown]
  - Dizziness [Unknown]
  - Feeling abnormal [Unknown]
  - Condition aggravated [Unknown]
  - Extra dose administered [Unknown]
  - Maternal exposure during pregnancy [Unknown]

NARRATIVE: CASE EVENT DATE: 20240213
